FAERS Safety Report 7302213-8 (Version None)
Quarter: 2011Q1

REPORT INFORMATION
  Report Type: 
  Country: None (occurrence: None)
  Receive Date: 20110218
  Receipt Date: 20110209
  Transmission Date: 20110831
  Serious: Yes (Other)
  Sender: FDA-Public Use
  Company Number: PHFR2011GB01272

PATIENT
  Sex: Male

DRUGS (2)
  1. SUNITINIB MALATE [Suspect]
     Indication: RENAL CANCER
     Dosage: 50 MG, UNK
     Route: 048
  2. ZOLEDRONIC ACID (ZOMETA) [Suspect]
     Indication: BONE PAIN
     Dosage: 4 MG, QMO
     Route: 042

REACTIONS (5)
  - ORAL DISORDER [None]
  - BONE DISORDER [None]
  - SWELLING [None]
  - PAIN IN JAW [None]
  - OSTEONECROSIS OF JAW [None]
